FAERS Safety Report 7868098-6 (Version None)
Quarter: 2011Q4

REPORT INFORMATION
  Report Type: 
  Country: None (occurrence: None)
  Receive Date: 20111028
  Receipt Date: 20111021
  Transmission Date: 20120403
  Serious: Yes (Other)
  Sender: FDA-Public Use
  Company Number: CA-PFIZER INC-2011255386

PATIENT
  Age: 80 Year
  Sex: Female

DRUGS (2)
  1. XALATAN [Suspect]
     Indication: GLAUCOMA
     Dosage: 1 GTT, IN EACH EYE 1X/DAY
     Route: 047
  2. VITALUX [Concomitant]
     Indication: MACULAR DEGENERATION
     Dosage: TWICE DAILY IN EACH EYE AM AND PM
     Route: 047

REACTIONS (3)
  - MACULAR DEGENERATION [None]
  - VISUAL IMPAIRMENT [None]
  - BLINDNESS [None]
